FAERS Safety Report 5038591-2 (Version None)
Quarter: 2006Q2

REPORT INFORMATION
  Report Type: 
  Country: None (occurrence: None)
  Receive Date: 20060628
  Receipt Date: 20060628
  Transmission Date: 20061013
  Serious: Yes (Hospitalization)
  Sender: FDA-Public Use
  Company Number: None

PATIENT
  Sex: Male
  Weight: 52.3 kg

DRUGS (2)
  1. OMNIPAQUE 140 [Suspect]
     Indication: SCAN WITH CONTRAST
     Dates: start: 20060427, end: 20060427
  2. ... [Concomitant]

REACTIONS (7)
  - BLOOD PRESSURE DECREASED [None]
  - CONFUSIONAL STATE [None]
  - CONTRAST MEDIA REACTION [None]
  - DEPRESSED LEVEL OF CONSCIOUSNESS [None]
  - HEART RATE INCREASED [None]
  - HYPOVENTILATION [None]
  - LOSS OF CONSCIOUSNESS [None]
